FAERS Safety Report 21021967 (Version 2)
Quarter: 2022Q3

REPORT INFORMATION
  Report Type: Spontaneous
  Country: US (occurrence: US)
  Receive Date: 20220629
  Receipt Date: 20220816
  Transmission Date: 20221026
  Serious: No
  Sender: FDA-Public Use
  Company Number: US-PFIZER INC-202200905671

PATIENT
  Age: 83 Year
  Sex: Female
  Weight: 52.16 kg

DRUGS (1)
  1. XELJANZ XR [Suspect]
     Active Substance: TOFACITINIB CITRATE
     Indication: Rheumatoid arthritis
     Dosage: 11 MG, 1X/DAY
     Route: 048

REACTIONS (3)
  - Therapeutic product effect incomplete [Unknown]
  - Malaise [Unknown]
  - Muscle spasms [Unknown]
